FAERS Safety Report 7768819-7 (Version None)
Quarter: 2011Q3

REPORT INFORMATION
  Report Type: 
  Country: None (occurrence: None)
  Receive Date: 20110920
  Receipt Date: 20110909
  Transmission Date: 20111222
  Serious: Yes (Other)
  Sender: FDA-Public Use
  Company Number: 2011MA003442

PATIENT
  Sex: Female
  Weight: 94.3482 kg

DRUGS (35)
  1. DEXTROSE [Concomitant]
  2. ATENOLOL [Concomitant]
  3. QUINAPRIL HCL [Concomitant]
  4. LEXAPRO [Concomitant]
  5. VICODIN [Concomitant]
  6. VERAMYST [Concomitant]
  7. CEPHALEXIN [Concomitant]
  8. XALATAN [Concomitant]
  9. NOVOLOG [Concomitant]
  10. CICLOPIROX [Concomitant]
  11. NITROGLYCERIN [Concomitant]
  12. DILTIAZEM HCL [Concomitant]
  13. SOMA [Concomitant]
  14. LUMIGAN EYE DROPS [Concomitant]
  15. FLUOCINONIDE [Concomitant]
  16. FLUCONAZOLE [Concomitant]
  17. DIPHENOXYLATE-STROPINE [Concomitant]
  18. METOCLOPRAMIDE [Suspect]
     Indication: DIABETIC GASTROPARESIS
     Dosage: 10 MG, TID;
     Dates: start: 20061103, end: 20100303
  19. HYDROCHLOROTHIAZIDE [Concomitant]
  20. NEXIUM [Concomitant]
  21. ESTRACE [Concomitant]
  22. OXYCODONE HCL AND ACETAMINOPHEN [Concomitant]
  23. ROZEREM [Concomitant]
  24. DICYCLOMINE [Concomitant]
  25. BIOTIN FORTE [Concomitant]
  26. HUMALOG [Concomitant]
  27. OXAPROZIN [Concomitant]
  28. METFORMIN HCL [Concomitant]
  29. ALPRAZOLAM [Concomitant]
  30. CIPROFLOXACIN [Concomitant]
  31. AZITHROMYCIN [Concomitant]
  32. BYETTA [Concomitant]
  33. JANUVIA [Concomitant]
  34. CARTIA XT [Concomitant]
  35. CELEBREX [Concomitant]

REACTIONS (44)
  - FAMILY STRESS [None]
  - APHASIA [None]
  - DYSPHAGIA [None]
  - RENAL CYST [None]
  - BALANCE DISORDER [None]
  - DYSKINESIA [None]
  - ACTIVITIES OF DAILY LIVING IMPAIRED [None]
  - DEPRESSION [None]
  - ANXIETY [None]
  - OBESITY [None]
  - STRESS [None]
  - NERVOUSNESS [None]
  - PERIARTHRITIS [None]
  - KYPHOSIS [None]
  - ECONOMIC PROBLEM [None]
  - DIABETES MELLITUS [None]
  - IMPAIRED GASTRIC EMPTYING [None]
  - TREMOR [None]
  - PARAESTHESIA [None]
  - EMOTIONAL DISORDER [None]
  - GASTROOESOPHAGEAL REFLUX DISEASE [None]
  - OSTEOARTHRITIS [None]
  - TENDONITIS [None]
  - TREATMENT NONCOMPLIANCE [None]
  - OVARIAN MASS [None]
  - EXTRAPYRAMIDAL DISORDER [None]
  - CARPAL TUNNEL SYNDROME [None]
  - JOINT SWELLING [None]
  - PELVIC MASS [None]
  - ERYTHEMA [None]
  - BACK PAIN [None]
  - POOR PERIPHERAL CIRCULATION [None]
  - HYPOAESTHESIA [None]
  - GRIP STRENGTH DECREASED [None]
  - HEPATIC STEATOSIS [None]
  - PAIN [None]
  - MUSCULOSKELETAL DISORDER [None]
  - MYALGIA [None]
  - INSOMNIA [None]
  - TRIGGER FINGER [None]
  - TARDIVE DYSKINESIA [None]
  - CHOKING [None]
  - HYPERTENSION [None]
  - ARTHRALGIA [None]
